FAERS Safety Report 8492362-3 (Version None)
Quarter: 2012Q3

REPORT INFORMATION
  Report Type: 
  Country: None (occurrence: None)
  Receive Date: 20120706
  Receipt Date: 20120628
  Transmission Date: 20120928
  Serious: Yes (Other)
  Sender: FDA-Public Use
  Company Number: SE-UCBSA-060806

PATIENT
  Age: 35 Year
  Sex: Female

DRUGS (3)
  1. CIMZIA [Suspect]
     Indication: RHEUMATOID ARTHRITIS
     Dosage: DOSE 200 , 200 MG
     Dates: start: 20120620, end: 20120620
  2. METHOTREXATE [Concomitant]
     Dosage: 20 ,20 MG
     Dates: start: 20070601
  3. SULFASALAZINE [Concomitant]
     Dosage: DOSE : 500 ,500 MG
     Dates: start: 20070601

REACTIONS (1)
  - ANGIOEDEMA [None]
